FAERS Safety Report 9729671 (Version 1)
Quarter: 2013Q4

REPORT INFORMATION
  Report Type: Spontaneous
  Country: GB (occurrence: None)
  Receive Date: 20131203
  Receipt Date: 20131203
  Transmission Date: 20140711
  Serious: Yes (Disabling, Other)
  Sender: FDA-Public Use
  Company Number: AUR-APL-2013-09839

PATIENT
  Age: 21 Year
  Sex: Male
  Weight: 65.31 kg

DRUGS (1)
  1. CIPROFLOXACIN (CIPROFLOXACIN) [Suspect]
     Indication: PROSTATITIS
     Route: 048
     Dates: start: 201310

REACTIONS (15)
  - Muscle spasms [None]
  - Eye pain [None]
  - Myalgia [None]
  - Joint crepitation [None]
  - Headache [None]
  - Abdominal pain upper [None]
  - Haematochezia [None]
  - Haematuria [None]
  - Muscular weakness [None]
  - Tinnitus [None]
  - Hyposmia [None]
  - Eye pain [None]
  - Pain in extremity [None]
  - Sleep disorder [None]
  - Weight bearing difficulty [None]
